FAERS Safety Report 5093853-8 (Version None)
Quarter: 2006Q3

REPORT INFORMATION
  Report Type: 
  Country: None (occurrence: None)
  Receive Date: 20060829
  Receipt Date: 20060829
  Transmission Date: 20061208
  Serious: Yes (Other)
  Sender: FDA-Public Use
  Company Number: None

PATIENT
  Age: 66 Year
  Sex: Male
  Weight: 94.3 kg

DRUGS (11)
  1. LEVALBUTEROL HCL [Suspect]
  2. METFORMIN HYDROCHLORIDE [Concomitant]
  3. RAMIPRIL [Concomitant]
  4. SIMVASTATIN [Concomitant]
  5. CIPROFLOXACIN/DEXAMETHASONE [Concomitant]
  6. HYDROXYZINE PAMOATE [Concomitant]
  7. PREDNISONE TAB [Concomitant]
  8. NAPROXEN [Concomitant]
  9. MORPHINE [Concomitant]
  10. BACITRACIN / POLYMYX [Concomitant]
  11. HYDROCHLOROTHIAZIDE [Concomitant]

REACTIONS (2)
  - PRURITUS [None]
  - RASH [None]
